FAERS Safety Report 5981525-4 (Version None)
Quarter: 2008Q4

REPORT INFORMATION
  Report Type: 
  Country: None (occurrence: None)
  Receive Date: 20081205
  Receipt Date: 20081128
  Transmission Date: 20090506
  Serious: Yes (Death, Hospitalization)
  Sender: FDA-Public Use
  Company Number: EC-ROCHE-599993

PATIENT
  Age: 38 Year
  Sex: Female
  Weight: 46 kg

DRUGS (3)
  1. XELODA [Suspect]
     Indication: GASTRIC CANCER
     Dosage: DOSAGE REGIMEN: 14 DAYS
     Route: 048
     Dates: start: 20080827, end: 20080924
  2. DOCETAXEL [Concomitant]
     Indication: GASTRIC CANCER
     Route: 042
     Dates: start: 20080827, end: 20080917
  3. CISPLATIN [Concomitant]
     Indication: GASTRIC CANCER
     Route: 042
     Dates: start: 20080827, end: 20080917

REACTIONS (4)
  - DEHYDRATION [None]
  - GASTROINTESTINAL DISORDER [None]
  - HYPOGLYCAEMIA [None]
  - MULTI-ORGAN FAILURE [None]
